FAERS Safety Report 5204333-0 (Version None)
Quarter: 2007Q1

REPORT INFORMATION
  Report Type: 
  Country: None (occurrence: None)
  Receive Date: 20070110
  Receipt Date: 20060217
  Transmission Date: 20070707
  Serious: No
  Sender: FDA-Public Use
  Company Number: US-BRISTOL-MYERS SQUIBB COMPANY-13287859

PATIENT
  Age: 53 Year
  Sex: Female
  Weight: 85 kg

DRUGS (5)
  1. ABILIFY [Suspect]
     Indication: SCHIZOPHRENIA
     Dates: start: 20040101
  2. AMANTADINE HCL [Interacting]
  3. TAMOXIFEN CITRATE [Concomitant]
  4. AVALIDE [Concomitant]
  5. LIPITOR [Concomitant]

REACTIONS (2)
  - DRUG INTERACTION [None]
  - WEIGHT INCREASED [None]
